FAERS Safety Report 4599291-6 (Version None)
Quarter: 2005Q1

REPORT INFORMATION
  Report Type: 
  Country: None (occurrence: None)
  Receive Date: 20050302
  Receipt Date: 20050302
  Transmission Date: 20050727
  Serious: Yes (Life-Threatening, Hospitalization)
  Sender: FDA-Public Use
  Company Number: None

PATIENT
  Age: 55 Year
  Sex: Male
  Weight: 123 kg

DRUGS (4)
  1. METHYLPREDNISOLONE [Suspect]
     Indication: FOOD ALLERGY
     Dosage: 125MG ONE TIME INTRAVENOUS
     Route: 042
     Dates: start: 20050114, end: 20050114
  2. DIGOXIN [Concomitant]
  3. SOTALOL HCL [Concomitant]
  4. POTASSIUM SUPPLEMENTS [Concomitant]

REACTIONS (4)
  - ANAPHYLACTIC REACTION [None]
  - DRUG HYPERSENSITIVITY [None]
  - GENERALISED ERYTHEMA [None]
  - RESPIRATORY ARREST [None]
